FAERS Safety Report 21238203 (Version 5)
Quarter: 2022Q4

REPORT INFORMATION
  Report Type: Other
  Country: CA (occurrence: None)
  Receive Date: 20220822
  Receipt Date: 20221129
  Transmission Date: 20230113
  Serious: Yes (Other)
  Sender: FDA-Public Use
  Company Number: CA-ROCHE-3114584

PATIENT
  Age: 64 Year
  Sex: Female
  Weight: 55 kg

DRUGS (23)
  1. ACTEMRA [Suspect]
     Active Substance: TOCILIZUMAB
     Indication: Rheumatoid arthritis
     Dosage: DRUG DOSE FIRST ADMINISTERED IS 244 MG MILLIGRAM(S)
     Route: 042
     Dates: start: 20110812, end: 20111201
  2. ACTEMRA [Suspect]
     Active Substance: TOCILIZUMAB
     Dosage: DRUG DOSE FIRST ADMINISTERED IS 366 MG MILLIGRAM(S)
     Route: 042
     Dates: start: 20120104, end: 20120618
  3. ACTEMRA [Suspect]
     Active Substance: TOCILIZUMAB
     Dosage: DRUG DOSE FIRST ADMINISTERED IS 336 MG MILLIGRAM(S)
     Route: 042
     Dates: start: 20120716, end: 20120813
  4. ACTEMRA [Suspect]
     Active Substance: TOCILIZUMAB
     Dosage: DRUG DOSE FIRST ADMINISTERED IS 366 MG MILLIGRAM(S)
     Route: 042
     Dates: start: 20120911, end: 20120911
  5. ACTEMRA [Suspect]
     Active Substance: TOCILIZUMAB
     Dosage: DRUG DOSE FIRST ADMINISTERED IS 420 MG MILLIGRAM(S)
     Route: 042
     Dates: start: 20121010, end: 20150323
  6. ACTEMRA [Suspect]
     Active Substance: TOCILIZUMAB
     Dosage: DRUG DOSE FIRST ADMINISTERED IS 496 MG MILLIGRAM(S)
     Route: 042
     Dates: start: 20150420, end: 20151117
  7. ACTEMRA [Suspect]
     Active Substance: TOCILIZUMAB
     Dosage: DRUG DOSE FIRST ADMINISTERED IS 448 MG MILLIGRAM(S)
     Route: 042
     Dates: start: 20151216, end: 20161109
  8. ACTEMRA [Suspect]
     Active Substance: TOCILIZUMAB
     Dosage: DRUG DOSE FIRST ADMINISTERED IS 456 MG MILLIGRAM(S)
     Route: 042
     Dates: start: 20161209, end: 20171114
  9. ACTEMRA [Suspect]
     Active Substance: TOCILIZUMAB
     Dosage: DRUG DOSE FIRST ADMINISTERED IS 464 MG MILLIGRAM(S)
     Route: 042
     Dates: start: 20171211, end: 20181113
  10. ACTEMRA [Suspect]
     Active Substance: TOCILIZUMAB
     Dosage: DRUG DOSE FIRST ADMINISTERED IS 440 MG MILLIGRAM(S)
     Route: 042
     Dates: start: 20181211, end: 20190618
  11. ACTEMRA [Suspect]
     Active Substance: TOCILIZUMAB
     Dosage: DRUG DOSE FIRST ADMINISTERED IS 222 MG MILLIGRAM(S)
     Route: 042
     Dates: start: 20211118
  12. APO OMEPRAZOLE [Concomitant]
  13. BETADERM [Concomitant]
     Active Substance: BETAMETHASONE VALERATE
  14. VITAMIN D3 [Concomitant]
     Active Substance: CHOLECALCIFEROL
     Route: 048
  15. EZETIMIBE [Concomitant]
     Active Substance: EZETIMIBE
  16. FENOFIBRATE [Concomitant]
     Active Substance: FENOFIBRATE
     Dosage: DAILY
     Route: 048
  17. NIZORAL [Concomitant]
     Active Substance: KETOCONAZOLE
     Route: 061
  18. PAXIL [Concomitant]
     Active Substance: PAROXETINE HYDROCHLORIDE
     Route: 048
  19. RESTASIS [Concomitant]
     Active Substance: CYCLOSPORINE
     Route: 047
  20. VENTOLIN [Concomitant]
     Active Substance: ALBUTEROL SULFATE
     Dosage: ONGOING
  21. SIMVASTATIN [Concomitant]
     Active Substance: SIMVASTATIN
  22. ESOMEPRAZOLE [Concomitant]
     Active Substance: ESOMEPRAZOLE
     Dosage: BID
     Route: 048
  23. OXYCODONE [Concomitant]
     Active Substance: OXYCODONE

REACTIONS (4)
  - Synovial cyst [Not Recovered/Not Resolved]
  - Rectal haemorrhage [Recovered/Resolved]
  - Tenosynovitis stenosans [Recovered/Resolved]
  - Haemorrhoid operation [Recovering/Resolving]

NARRATIVE: CASE EVENT DATE: 20220501
